FAERS Safety Report 19716016 (Version 1)
Quarter: 2021Q3

REPORT INFORMATION
  Report Type: Spontaneous
  Country: US (occurrence: US)
  Receive Date: 20210818
  Receipt Date: 20210818
  Transmission Date: 20211014
  Serious: Yes (Other)
  Sender: FDA-Public Use
  Company Number: US-SLATE RUN PHARMACEUTICALS-21US000638

PATIENT

DRUGS (5)
  1. EPTIFIBATIDE. [Suspect]
     Active Substance: EPTIFIBATIDE
     Dosage: UNK (5 DAYS PRIOR)
     Route: 042
  2. EPTIFIBATIDE. [Suspect]
     Active Substance: EPTIFIBATIDE
     Indication: ARTERIAL CATHETERISATION
     Dosage: UNK UNK, SINGLE (12 HOURS THEREAFTER)
     Route: 042
  3. ASPIRIN [ACETYLSALICYLIC ACID] [Concomitant]
     Active Substance: ASPIRIN
     Indication: ACUTE MYOCARDIAL INFARCTION
  4. EPTIFIBATIDE. [Suspect]
     Active Substance: EPTIFIBATIDE
     Dosage: UNK UNK, 2 ONLY
     Route: 042
  5. TICAGRELOR. [Concomitant]
     Active Substance: TICAGRELOR
     Indication: ACUTE MYOCARDIAL INFARCTION

REACTIONS (2)
  - Pulmonary haemorrhage [Recovered/Resolved]
  - Thrombocytopenia [Recovered/Resolved]
